FAERS Safety Report 11529094 (Version 1)
Quarter: 2015Q3

REPORT INFORMATION
  Report Type: Report from Study
  Country: ID (occurrence: ID)
  Receive Date: 20150921
  Receipt Date: 20150921
  Transmission Date: 20151125
  Serious: Yes (Other)
  Sender: FDA-Public Use
  Company Number: ID-BAYER-2015-420486

PATIENT
  Age: 51 Year
  Sex: Male

DRUGS (1)
  1. NEXAVAR [Suspect]
     Active Substance: SORAFENIB
     Indication: HEPATOCELLULAR CARCINOMA
     Dosage: 400 MG, QD
     Route: 048
     Dates: start: 20130304

REACTIONS (6)
  - Fatigue [None]
  - Haemoglobin decreased [None]
  - Muscle spasms [None]
  - White blood cell count decreased [None]
  - Deafness [None]
  - Dysphonia [None]

NARRATIVE: CASE EVENT DATE: 2014
